FAERS Safety Report 5719662-1 (Version None)
Quarter: 2008Q2

REPORT INFORMATION
  Report Type: 
  Country: None (occurrence: None)
  Receive Date: 20080424
  Receipt Date: 20080418
  Transmission Date: 20081010
  Serious: Yes (Hospitalization, Other)
  Sender: FDA-Public Use
  Company Number: 2008SP001285

PATIENT
  Age: 32 Year
  Sex: Female
  Weight: 68.9467 kg

DRUGS (3)
  1. PEG-INTRON [Suspect]
     Indication: HEPATITIS C
     Dosage: ; SC
     Route: 058
     Dates: start: 20071121, end: 20080101
  2. RIBASPHERE [Suspect]
     Indication: HEPATITIS C
     Dosage: ; PO
     Route: 048
     Dates: start: 20071121, end: 20080101
  3. COUMADIN [Suspect]
     Indication: DRUG USE FOR UNKNOWN INDICATION
     Dosage: 10 MG; ; PO
     Route: 048

REACTIONS (7)
  - ANAEMIA [None]
  - BLOOD URINE PRESENT [None]
  - FATIGUE [None]
  - GINGIVAL BLEEDING [None]
  - HAEMORRHAGIC OVARIAN CYST [None]
  - INFLUENZA LIKE ILLNESS [None]
  - INTERNATIONAL NORMALISED RATIO INCREASED [None]
